FAERS Safety Report 16251984 (Version 1)
Quarter: 2019Q2

REPORT INFORMATION
  Report Type: Report from Study
  Country: US (occurrence: US)
  Receive Date: 20190429
  Receipt Date: 20190429
  Transmission Date: 20190711
  Serious: Yes (Hospitalization, Other)
  Sender: FDA-Public Use
  Company Number: US-JNJFOC-20151004041

PATIENT
  Age: 66 Year
  Sex: Male

DRUGS (10)
  1. CHLORTHALIDONE. [Concomitant]
     Active Substance: CHLORTHALIDONE
  2. SIMVASTATIN. [Concomitant]
     Active Substance: SIMVASTATIN
  3. IMBRUVICA [Suspect]
     Active Substance: IBRUTINIB
     Indication: CHRONIC LYMPHOCYTIC LEUKAEMIA
     Route: 048
     Dates: start: 20140331, end: 20180430
  4. ASPIRIN. [Concomitant]
     Active Substance: ASPIRIN
  5. LISINOPRIL. [Concomitant]
     Active Substance: LISINOPRIL
     Indication: HYPERTENSION
  6. AMLODIPINE [Concomitant]
     Active Substance: AMLODIPINE BESYLATE
  7. VITAMIN D3 [Concomitant]
     Active Substance: CHOLECALCIFEROL
     Dosage: 1000 UNITS, QD
  8. FENOFIBRATE. [Concomitant]
     Active Substance: FENOFIBRATE
  9. ALLOPURINOL. [Concomitant]
     Active Substance: ALLOPURINOL
  10. SPIRONOLACTONE. [Concomitant]
     Active Substance: SPIRONOLACTONE

REACTIONS (6)
  - Sinus operation [Unknown]
  - Arrhythmia [Unknown]
  - Acute pulmonary oedema [Unknown]
  - Blood pressure fluctuation [Unknown]
  - Post procedural complication [Unknown]
  - Renal failure [Unknown]

NARRATIVE: CASE EVENT DATE: 201509
